FAERS Safety Report 4828062-8 (Version None)
Quarter: 2005Q4

REPORT INFORMATION
  Report Type: 
  Country: None (occurrence: None)
  Receive Date: 20051110
  Receipt Date: 20051031
  Transmission Date: 20060501
  Serious: Yes (Hospitalization)
  Sender: FDA-Public Use
  Company Number: GBS051118968

PATIENT
  Age: 69 Year
  Sex: Female

DRUGS (4)
  1. EVISTA [Suspect]
     Dosage: 60 MG
     Route: 048
  2. CO-CODAMOL [Concomitant]
  3. SENNA [Concomitant]
  4. LOSEC   (OMEPRAZOLE SODIUM) [Concomitant]

REACTIONS (1)
  - CEREBROVASCULAR ACCIDENT [None]
